FAERS Safety Report 18738717 (Version 1)
Quarter: 2021Q1

REPORT INFORMATION
  Report Type: Spontaneous
  Country: US (occurrence: US)
  Receive Date: 20210114
  Receipt Date: 20210114
  Transmission Date: 20210419
  Serious: No
  Sender: FDA-Public Use
  Company Number: US-AMGEN-USASP2021002888

PATIENT
  Age: 77 Year
  Sex: Male

DRUGS (4)
  1. METHOTREXATE. [Concomitant]
     Active Substance: METHOTREXATE
     Indication: RHEUMATOID ARTHRITIS
     Dosage: 7.5 MILLIGRAM (FIRST DOSE)
     Route: 048
  2. METHOTREXATE. [Concomitant]
     Active Substance: METHOTREXATE
     Dosage: 7.5 MILLIGRAM (SECOND DOSE)
     Route: 048
  3. LEUCOVORIN [FOLINIC ACID] [Concomitant]
     Active Substance: LEUCOVORIN
     Dosage: 100 MILLIGRAM/SQ. METER (EVERY SIX HOURS FOR TWO WEEKS)
     Route: 042
  4. FILGRASTIM [Suspect]
     Active Substance: FILGRASTIM
     Indication: PANCYTOPENIA
     Dosage: 480 MICROGRAM, QD
     Route: 058

REACTIONS (1)
  - Off label use [Unknown]
